FAERS Safety Report 9206708 (Version 2)
Quarter: 2013Q4

REPORT INFORMATION
  Report Type: Spontaneous
  Country: US (occurrence: US)
  Receive Date: 20130403
  Receipt Date: 20131226
  Transmission Date: 20140711
  Serious: Yes (Hospitalization, Other)
  Sender: FDA-Public Use
  Company Number: US-BAYER-2013-040633

PATIENT
  Age: 38 Year
  Sex: Female

DRUGS (4)
  1. YAZ [Suspect]
     Dosage: UNK
     Dates: start: 2006, end: 2011
  2. TOPAMAX [Concomitant]
     Indication: MIGRAINE
     Dosage: 100 2 [TIMES] DAY
     Route: 048
  3. WELLBUTRIN [Concomitant]
     Indication: ANXIETY
     Dosage: 150 2 [TIMES] DAY
     Route: 048
  4. VICODIN [Concomitant]
     Indication: PAIN
     Dosage: 1 AS NEEDED
     Route: 048

REACTIONS (2)
  - Cholecystectomy [None]
  - Cholecystitis chronic [None]
